FAERS Safety Report 9680016 (Version 1)
Quarter: 2013Q4

REPORT INFORMATION
  Report Type: Report from Study
  Country: CA (occurrence: CA)
  Receive Date: 20131110
  Receipt Date: 20131110
  Transmission Date: 20140711
  Serious: Yes (Other)
  Sender: FDA-Public Use
  Company Number: PHHY2013CA127177

PATIENT
  Age: 77 Year
  Sex: Female

DRUGS (15)
  1. ACLASTA [Suspect]
     Indication: OSTEOPOROSIS
     Dosage: 5 MG, UNK
     Route: 042
     Dates: start: 20111108
  2. ACLASTA [Suspect]
     Dosage: 5 MG, UNK
     Route: 042
     Dates: start: 20121212
  3. ALTACE [Concomitant]
  4. NORVASC [Concomitant]
  5. METOPROLOL [Concomitant]
  6. DYAZIDE [Concomitant]
  7. PROBIOTICS [Concomitant]
  8. CALCIUM [Concomitant]
  9. OMEGA 3 [Concomitant]
  10. VIT D [Concomitant]
  11. ASPIRIN [Concomitant]
  12. POTASSIUM [Concomitant]
  13. VIT C [Concomitant]
  14. MAGNESIUM [Concomitant]
  15. TYLENOL [Concomitant]
     Dosage: UNK UKN, PRN

REACTIONS (3)
  - Breast cancer [Recovered/Resolved]
  - Rotator cuff syndrome [Recovered/Resolved]
  - Musculoskeletal pain [Recovered/Resolved]
